FAERS Safety Report 5367550-5 (Version None)
Quarter: 2007Q2

REPORT INFORMATION
  Report Type: 
  Country: None (occurrence: None)
  Receive Date: 20070622
  Receipt Date: 20060102
  Transmission Date: 20071010
  Serious: No
  Sender: FDA-Public Use
  Company Number: US-ASTRAZENECA-2007UW00083

PATIENT
  Age: 51 Year
  Sex: Male
  Weight: 72.6 kg

DRUGS (2)
  1. PULMICORT [Suspect]
     Indication: ASTHMA
     Dosage: 1 PUFF TWICE A DAY
     Route: 055
  2. NEXIUM [Concomitant]
     Route: 048

REACTIONS (2)
  - PSORIASIS [None]
  - SKIN LESION [None]
